FAERS Safety Report 21010707 (Version 7)
Quarter: 2022Q3

REPORT INFORMATION
  Report Type: Report from Study
  Country: JP (occurrence: None)
  Receive Date: 20220627
  Receipt Date: 20220915
  Transmission Date: 20221027
  Serious: Yes (Hospitalization)
  Sender: FDA-Public Use
  Company Number: JP-ROCHE-3122271

PATIENT
  Age: 69 Year
  Sex: Male

DRUGS (18)
  1. FARICIMAB [Suspect]
     Active Substance: FARICIMAB
     Indication: Neovascular age-related macular degeneration
     Dosage: DOSE LAST STUDY DRUG ADMIN PRIOR AE/SAE IS 6 MG?ON 18/FEB/2022, START AND END DATE OF MOST RECENT DO
     Route: 050
     Dates: start: 20220114
  2. AFLIBERCEPT [Suspect]
     Active Substance: AFLIBERCEPT
     Indication: Neovascular age-related macular degeneration
     Dosage: ON 17/JUN/2022, START DATE AND END DATE OF MOST RECENT DOSE OF STUDY DRUG PRIOR TO SAE
     Route: 050
     Dates: start: 20220415
  3. AMLODIPINE [Concomitant]
     Active Substance: AMLODIPINE BESYLATE
     Indication: Hypertension
     Route: 048
  4. METHYLCOBALAMIN [Concomitant]
     Active Substance: METHYLCOBALAMIN
     Indication: Lumbar spinal stenosis
     Route: 048
     Dates: end: 20220520
  5. LYRICA [Concomitant]
     Active Substance: PREGABALIN
     Indication: Lumbar spinal stenosis
     Route: 048
     Dates: end: 20220520
  6. LEVOFLOXACIN [Concomitant]
     Active Substance: LEVOFLOXACIN
     Indication: Infection prophylaxis
     Route: 047
     Dates: start: 20220618, end: 20220708
  7. DICLOFENAC SODIUM [Concomitant]
     Active Substance: DICLOFENAC SODIUM
     Indication: Post procedural complication
     Route: 047
     Dates: start: 20220618, end: 20220901
  8. FLUOROMETHOLONE [Concomitant]
     Active Substance: FLUOROMETHOLONE
     Route: 047
     Dates: start: 20220618, end: 20220708
  9. OPHMIC [Concomitant]
     Indication: Mydriasis
     Route: 047
     Dates: start: 20220621, end: 20220621
  10. OFLOXACIN [Concomitant]
     Active Substance: OFLOXACIN
     Route: 047
     Dates: start: 20220621, end: 20220621
  11. BSS PLUS [Concomitant]
     Active Substance: CALCIUM CHLORIDE\DEXTROSE\MAGNESIUM CHLORIDE\OXIGLUTATIONE\POTASSIUM CHLORIDE\SODIUM BICARBONATE\SOD
     Route: 047
     Dates: start: 20220621, end: 20220621
  12. EPINEPHRINE [Concomitant]
     Active Substance: EPINEPHRINE
     Indication: Local anaesthesia
     Route: 042
     Dates: start: 20220621, end: 20220621
  13. SODIUM HYALURONATE [Concomitant]
     Active Substance: HYALURONATE SODIUM
     Route: 047
     Dates: start: 20220621, end: 20220621
  14. BENOXINATE HYDROCHLORIDE [Concomitant]
     Active Substance: BENOXINATE HYDROCHLORIDE
     Indication: Anaesthesia
     Route: 047
     Dates: start: 20220621, end: 20220621
  15. SHELLGAN [Concomitant]
     Route: 047
     Dates: start: 20220621, end: 20220621
  16. POVIDONE-IODINE [Concomitant]
     Active Substance: POVIDONE-IODINE
     Route: 047
     Dates: start: 20220621, end: 20220621
  17. XYLOCAINE OPHTHALMIC 4% [Concomitant]
     Indication: Anaesthesia
     Route: 047
     Dates: start: 20220621, end: 20220621
  18. DEXTROSE\POTASSIUM CHLORIDE\SODIUM CHLORIDE\SODIUM LACTATE [Concomitant]
     Active Substance: DEXTROSE\POTASSIUM CHLORIDE\SODIUM CHLORIDE\SODIUM LACTATE
     Indication: Fluid replacement
     Route: 042
     Dates: start: 20220621, end: 20220621

REACTIONS (1)
  - Cataract [Recovered/Resolved]

NARRATIVE: CASE EVENT DATE: 20220218
